FAERS Safety Report 6446488-6 (Version None)
Quarter: 2009Q4

REPORT INFORMATION
  Report Type: 
  Country: None (occurrence: None)
  Receive Date: 20091119
  Receipt Date: 20091109
  Transmission Date: 20100525
  Serious: Yes (Hospitalization)
  Sender: FDA-Public Use
  Company Number: JP-NOVOPROD-300555

PATIENT
  Age: 51 Year
  Sex: Male
  Weight: 52 kg

DRUGS (2)
  1. INNOLET R CHU [Suspect]
     Indication: TYPE 1 DIABETES MELLITUS
     Dosage: 12+10+4  IU, QD
     Route: 058
     Dates: start: 20090115
  2. LANTUS [Suspect]
     Dosage: 18 U, QD
     Route: 058
     Dates: start: 20090105

REACTIONS (1)
  - NEUROPATHY PERIPHERAL [None]
